FAERS Safety Report 21007116 (Version 1)
Quarter: 2022Q3

REPORT INFORMATION
  Report Type: Spontaneous
  Country: SK (occurrence: SK)
  Receive Date: 20220625
  Receipt Date: 20220625
  Transmission Date: 20221027
  Serious: Yes (Other)
  Sender: FDA-Public Use
  Company Number: SK-NOVARTISPH-NVSC2022SK141258

PATIENT
  Age: 45 Year
  Sex: Female
  Weight: 65 kg

DRUGS (5)
  1. ADALIMUMAB [Suspect]
     Active Substance: ADALIMUMAB
     Indication: Oligoarthritis
     Dosage: UNK
     Route: 058
     Dates: start: 2017, end: 202112
  2. HYDROXYCHLOROQUINE [Concomitant]
     Active Substance: HYDROXYCHLOROQUINE
     Indication: Rheumatoid arthritis
     Dosage: UNK UNK, QD
     Route: 048
     Dates: start: 2019
  3. SULFASALAZINE [Concomitant]
     Active Substance: SULFASALAZINE
     Indication: Rheumatoid arthritis
     Dosage: UNK (2 TIMES 1TABLET, AFTER 2 WEEKS DOSAGE INCREASED TO 2G PER DAY )
     Route: 048
     Dates: start: 20110308, end: 2012
  4. SULFASALAZINE [Concomitant]
     Active Substance: SULFASALAZINE
     Dosage: UNK
     Route: 065
     Dates: start: 2014, end: 2016
  5. SULFASALAZINE [Concomitant]
     Active Substance: SULFASALAZINE
     Dosage: UNK
     Route: 065
     Dates: start: 2016, end: 2019

REACTIONS (12)
  - Arthralgia [Recovering/Resolving]
  - Erythema [Recovering/Resolving]
  - Lupus-like syndrome [Recovering/Resolving]
  - Fatigue [Not Recovered/Not Resolved]
  - Butterfly rash [Not Recovered/Not Resolved]
  - Rosacea [Recovering/Resolving]
  - Alopecia [Recovering/Resolving]
  - Meniscus injury [Not Recovered/Not Resolved]
  - Synovial cyst [Not Recovered/Not Resolved]
  - Cyst [Not Recovered/Not Resolved]
  - Arthropod bite [Recovered/Resolved]
  - Inflammation [Recovered/Resolved]

NARRATIVE: CASE EVENT DATE: 20191025
